FAERS Safety Report 14133464 (Version 3)
Quarter: 2017Q4

REPORT INFORMATION
  Report Type: Spontaneous
  Country: CO (occurrence: CO)
  Receive Date: 20171027
  Receipt Date: 20171121
  Transmission Date: 20180321
  Serious: Yes (Other)
  Sender: FDA-Public Use
  Company Number: CO-ROCHE-2012661

PATIENT
  Age: 52 Year
  Sex: Male

DRUGS (2)
  1. MABTHERA [Suspect]
     Active Substance: RITUXIMAB
     Indication: VASCULITIS
     Dosage: 2000 MG EVERY YEAR
     Route: 065
     Dates: start: 20131123, end: 20161027
  2. MABTHERA [Suspect]
     Active Substance: RITUXIMAB
     Dosage: 2000 MG EVERY YEAR
     Route: 065
     Dates: start: 20171012

REACTIONS (2)
  - Monoplegia [Recovering/Resolving]
  - Incorrect dose administered [Unknown]

NARRATIVE: CASE EVENT DATE: 20171012
